FAERS Safety Report 14351761 (Version 3)
Quarter: 2018Q3

REPORT INFORMATION
  Report Type: Report from Study
  Country: FR (occurrence: FR)
  Receive Date: 20180104
  Receipt Date: 20180713
  Transmission Date: 20181010
  Serious: Yes (Hospitalization)
  Sender: FDA-Public Use
  Company Number: FR-EMD SERONO-9005037

PATIENT
  Age: 74 Year
  Sex: Female
  Weight: 63 kg

DRUGS (2)
  1. AVELUMAB [Suspect]
     Active Substance: AVELUMAB
     Indication: SQUAMOUS CELL CARCINOMA OF HEAD AND NECK
     Route: 042
     Dates: start: 20171204, end: 20171218
  2. CETUXIMAB. [Suspect]
     Active Substance: CETUXIMAB
     Indication: SQUAMOUS CELL CARCINOMA OF HEAD AND NECK
     Dosage: INITIAL LOADING DOSE OF 400 MG/M2 FOLLOWED BY WEEKLY DOSES OF 250 MG/M2
     Route: 042
     Dates: start: 20171204, end: 20171218

REACTIONS (2)
  - Hypertrophic cardiomyopathy [Recovered/Resolved]
  - Radiation mucositis [Recovered/Resolved]

NARRATIVE: CASE EVENT DATE: 20171223
